FAERS Safety Report 18076062 (Version 1)
Quarter: 2020Q3

REPORT INFORMATION
  Report Type: Spontaneous
  Country: US (occurrence: US)
  Receive Date: 20200727
  Receipt Date: 20200727
  Transmission Date: 20201103
  Serious: No
  Sender: FDA-Public Use
  Company Number: US-ABBVIE-20K-163-3419321-00

PATIENT
  Sex: Female

DRUGS (2)
  1. LEVOTHYROXINE. [Suspect]
     Active Substance: LEVOTHYROXINE
     Indication: PRODUCT USED FOR UNKNOWN INDICATION
     Route: 048
  2. SYNTHROID [Suspect]
     Active Substance: LEVOTHYROXINE SODIUM
     Indication: PRODUCT USED FOR UNKNOWN INDICATION
     Dosage: 0.025 DOSAGE
     Route: 048

REACTIONS (16)
  - Joint swelling [Unknown]
  - Swelling [Recovering/Resolving]
  - Palpitations [Recovering/Resolving]
  - Vomiting [Recovering/Resolving]
  - Dry mouth [Unknown]
  - Decreased appetite [Recovering/Resolving]
  - Throat irritation [Unknown]
  - Disorientation [Unknown]
  - Oropharyngeal pain [Unknown]
  - Dizziness [Recovering/Resolving]
  - Diarrhoea [Recovering/Resolving]
  - Hyperhidrosis [Unknown]
  - Nausea [Recovering/Resolving]
  - Peripheral swelling [Unknown]
  - Headache [Recovering/Resolving]
  - Tremor [Unknown]
